FAERS Safety Report 7519446-8 (Version None)
Quarter: 2011Q2

REPORT INFORMATION
  Report Type: 
  Country: None (occurrence: None)
  Receive Date: 20110602
  Receipt Date: 20110530
  Transmission Date: 20111010
  Serious: Yes (Other)
  Sender: FDA-Public Use
  Company Number: NL-PFIZER INC-2011116220

PATIENT
  Age: 47 Year
  Sex: Female

DRUGS (1)
  1. LYRICA [Suspect]
     Indication: NEURALGIA
     Dosage: 75 MG, 2X/DAY

REACTIONS (4)
  - WEIGHT INCREASED [None]
  - FACIAL PARESIS [None]
  - DYSPHAGIA [None]
  - DRUG EFFECT DECREASED [None]
